FAERS Safety Report 4889375-7 (Version None)
Quarter: 2006Q1

REPORT INFORMATION
  Report Type: 
  Country: None (occurrence: None)
  Receive Date: 20060124
  Receipt Date: 20060117
  Transmission Date: 20060701
  Serious: Yes (Death, Other)
  Sender: FDA-Public Use
  Company Number: US-AVENTIS-200610662US

PATIENT
  Sex: Female
  Weight: 113.4 kg

DRUGS (2)
  1. LOVENOX [Suspect]
     Route: 058
  2. UNFRACTIONED HEPARIN [Concomitant]
     Dosage: DOSE: UNK

REACTIONS (2)
  - DEEP VEIN THROMBOSIS [None]
  - PULMONARY EMBOLISM [None]
